FAERS Safety Report 22197583 (Version 2)
Quarter: 2023Q2

REPORT INFORMATION
  Report Type: Spontaneous
  Country: DE (occurrence: DE)
  Receive Date: 20230411
  Receipt Date: 20230505
  Transmission Date: 20230721
  Serious: Yes (Other)
  Sender: FDA-Public Use
  Company Number: None

PATIENT
  Age: 62 Year
  Sex: Female

DRUGS (5)
  1. STIVARGA [Suspect]
     Active Substance: REGORAFENIB
     Indication: Glioblastoma multiforme
     Dosage: UNK
     Route: 048
     Dates: start: 20230125, end: 20230127
  2. STIVARGA [Suspect]
     Active Substance: REGORAFENIB
     Indication: Glioblastoma multiforme
     Dosage: UNK
     Dates: start: 20230301, end: 20230307
  3. LEVETIRACETAM [Concomitant]
     Active Substance: LEVETIRACETAM
     Indication: Partial seizures
     Dosage: 3000 MG, QD
  4. LEVETIRACETAM [Concomitant]
     Active Substance: LEVETIRACETAM
     Indication: Partial seizures
     Dosage: 1000 MG, QD
  5. LEVETIRACETAM [Concomitant]
     Active Substance: LEVETIRACETAM
     Indication: Partial seizures
     Dosage: 2000 MG, QD

REACTIONS (8)
  - Glioblastoma multiforme [None]
  - Status epilepticus [Not Recovered/Not Resolved]
  - Partial seizures [Recovered/Resolved]
  - Partial seizures [Not Recovered/Not Resolved]
  - Status epilepticus [Recovered/Resolved]
  - Thrombocytopenia [None]
  - Peritumoural oedema [None]
  - Off label use [None]

NARRATIVE: CASE EVENT DATE: 20230128
